FAERS Safety Report 21290377 (Version 3)
Quarter: 2022Q4

REPORT INFORMATION
  Report Type: Report from Study
  Country: ZA (occurrence: ZA)
  Receive Date: 20220902
  Receipt Date: 20221020
  Transmission Date: 20230113
  Serious: Yes (Hospitalization, Other)
  Sender: FDA-Public Use
  Company Number: ZA-BRISTOL-MYERS SQUIBB COMPANY-2022-098018

PATIENT
  Age: 44 Year
  Sex: Female

DRUGS (29)
  1. Advance IODINE complex [Concomitant]
     Indication: Iodine deficiency
     Dosage: 1 TABLET DOSING UNIT, ONCE A DAY
     Route: 048
  2. CELEBREX [Concomitant]
     Active Substance: CELECOXIB
     Indication: Periarthritis
     Route: 048
     Dates: start: 20190307
  3. MELATONIN [Concomitant]
     Active Substance: MELATONIN
     Indication: Supplementation therapy
     Route: 048
     Dates: start: 20180906
  4. PIRACETAM [Concomitant]
     Active Substance: PIRACETAM
     Indication: Fatigue
     Dosage: 3 TIMES A DAY
     Route: 048
     Dates: start: 20150602
  5. NUVIGIL [Concomitant]
     Active Substance: ARMODAFINIL
     Indication: Fatigue
     Dosage: AS NEEDED
     Route: 048
     Dates: start: 20220303
  6. Vitamin D CALCIFIED OILY SOLUTION [Concomitant]
     Indication: Vitamin supplementation
     Route: 048
  7. NAPROXEN [Concomitant]
     Active Substance: NAPROXEN
     Indication: Influenza like illness
     Dosage: AS NEEDED
     Route: 048
  8. CYCLIZINE [Concomitant]
     Active Substance: CYCLIZINE
     Indication: Influenza like illness
     Dosage: AS NEEDED
     Route: 048
  9. PROVIGIL [Concomitant]
     Active Substance: MODAFINIL
     Indication: Fatigue
     Route: 048
  10. AUGMENTIN [Concomitant]
     Active Substance: AMOXICILLIN\CLAVULANATE POTASSIUM
     Indication: Dental implantation
     Route: 048
  11. SEVOFLURANE [Concomitant]
     Active Substance: SEVOFLURANE
     Indication: Anaesthesia
     Dosage: ONCE A DAY
     Route: 055
  12. PROPOFOL [Concomitant]
     Active Substance: PROPOFOL
     Indication: Anaesthesia
     Dosage: ONCE A DAY
     Route: 042
  13. GRANISETRON [Concomitant]
     Active Substance: GRANISETRON
     Indication: Anaesthesia
     Dosage: ONCE A DAY
     Route: 042
  14. SUFENTANIL CITRATE [Concomitant]
     Active Substance: SUFENTANIL CITRATE
     Indication: Anaesthesia
     Dosage: ONCE A DAY
     Route: 042
  15. ROCURONIUM [Concomitant]
     Active Substance: ROCURONIUM BROMIDE
     Indication: Anaesthesia
     Dosage: ONCE A DAY
     Route: 042
  16. PETHIDINE [PETHIDINE HYDROCHLORIDE] [Concomitant]
     Indication: Anaesthesia
     Dosage: ONCE A DAY
     Route: 042
  17. PETHIDINE [PETHIDINE HYDROCHLORIDE] [Concomitant]
     Indication: Pain
     Dosage: Q6HR
     Route: 030
  18. NEOSTIGMINE BROMIDE [Concomitant]
     Active Substance: NEOSTIGMINE BROMIDE
     Indication: Anaesthesia
     Dosage: ONCE A DAY
     Route: 042
  19. CEFAZOLIN SODIUM [Concomitant]
     Active Substance: CEFAZOLIN SODIUM
     Indication: Anaesthesia
     Dosage: ONCE A DAY
     Route: 042
  20. GLYCOPYRROLATE [Concomitant]
     Active Substance: GLYCOPYRROLATE
     Indication: Anaesthesia
     Dosage: ONCE A DAY
     Route: 042
  21. FLEBOBAG RING LACT [Concomitant]
     Indication: Anaesthesia
     Dosage: 3 TIMES A DAY
     Route: 042
  22. HYDROXYZINE HYDROCHLORIDE [Concomitant]
     Active Substance: HYDROXYZINE HYDROCHLORIDE
     Indication: Pain
     Dosage: Q4HR
     Route: 030
  23. ACETAMINOPHEN [Concomitant]
     Active Substance: ACETAMINOPHEN
     Indication: Anaesthesia
     Dosage: ONCE A DAY
     Route: 042
  24. ACETAMINOPHEN [Concomitant]
     Active Substance: ACETAMINOPHEN
     Indication: Pain
     Dosage: AS NEEDED
     Route: 042
  25. METOCLOPRAMIDE HYDROCHLORIDE [Concomitant]
     Active Substance: METOCLOPRAMIDE HYDROCHLORIDE
     Indication: Nausea
     Dosage: 3 TIMES A DAY
     Route: 042
  26. MORPHINE [Concomitant]
     Active Substance: MORPHINE
     Indication: Pain prophylaxis
     Dosage: ONCE A DAY
     Route: 042
  27. ZOFRAN [Concomitant]
     Active Substance: ONDANSETRON HYDROCHLORIDE
     Indication: Prophylaxis of nausea and vomiting
     Dosage: ONCE A DAY
     Route: 042
  28. ACETAMINOPHEN\TRAMADOL [Concomitant]
     Active Substance: ACETAMINOPHEN\TRAMADOL
     Indication: Pain
     Dosage: 1 TAB, 3 TIMES A DAY
     Route: 048
  29. ACETAMINOPHEN\CODEINE\IBUPROFEN [Concomitant]
     Active Substance: ACETAMINOPHEN\CODEINE\IBUPROFEN
     Indication: Pain
     Dosage: 2 TAB, 3 TIMES A DAY
     Route: 048

REACTIONS (1)
  - Papillary thyroid cancer [Not Recovered/Not Resolved]

NARRATIVE: CASE EVENT DATE: 20220818
